FAERS Safety Report 14341353 (Version 1)
Quarter: 2018Q1

REPORT INFORMATION
  Report Type: Spontaneous
  Country: GB (occurrence: GB)
  Receive Date: 20180102
  Receipt Date: 20180102
  Transmission Date: 20180509
  Serious: Yes (Death)
  Sender: FDA-Public Use
  Company Number: GB-TEVA-478095ISR

PATIENT
  Age: 54 Year
  Sex: Female

DRUGS (3)
  1. ADOPORT [Suspect]
     Active Substance: TACROLIMUS
     Dosage: 1 MG HARD GELATIN CAPSULE
     Route: 048
  2. AZATHIOPRINE. [Suspect]
     Active Substance: AZATHIOPRINE
     Dosage: 50 MG TABLET
     Route: 048
  3. PREDNISOLONE. [Suspect]
     Active Substance: PREDNISOLONE
     Route: 048

REACTIONS (1)
  - Death [Fatal]
